FAERS Safety Report 24664799 (Version 1)
Quarter: 2024Q4

REPORT INFORMATION
  Report Type: Spontaneous
  Country: US (occurrence: US)
  Receive Date: 20241126
  Receipt Date: 20241126
  Transmission Date: 20250115
  Serious: Yes (Death, Hospitalization, Other)
  Sender: MERCK
  Company Number: US-009507513-2411USA008868

PATIENT
  Sex: Male

DRUGS (1)
  1. WINREVAIR [Suspect]
     Active Substance: SOTATERCEPT-CSRK
     Dosage: UNK
     Route: 058
     Dates: start: 2024

REACTIONS (2)
  - Death [Fatal]
  - Platelet count decreased [Unknown]

NARRATIVE: CASE EVENT DATE: 20240101
